FAERS Safety Report 19430618 (Version 2)
Quarter: 2022Q3

REPORT INFORMATION
  Report Type: Spontaneous
  Country: US (occurrence: None)
  Receive Date: 20210618
  Receipt Date: 20220701
  Transmission Date: 20221027
  Serious: No
  Sender: FDA-Public Use
  Company Number: US-ROCHE-2790604

PATIENT
  Sex: Female
  Weight: 78.088 kg

DRUGS (7)
  1. ACTEMRA [Suspect]
     Active Substance: TOCILIZUMAB
     Indication: Giant cell arteritis
     Route: 058
     Dates: start: 20201124
  2. ACTEMRA [Suspect]
     Active Substance: TOCILIZUMAB
  3. ACTEMRA [Suspect]
     Active Substance: TOCILIZUMAB
     Route: 058
     Dates: start: 202009
  4. ACTEMRA [Suspect]
     Active Substance: TOCILIZUMAB
  5. TRESIBA [Concomitant]
     Active Substance: INSULIN DEGLUDEC
     Indication: Diabetes mellitus
     Dosage: 60 UNITS AT BEDTIME
     Route: 058
  6. CANNABIDIOL [Concomitant]
     Active Substance: CANNABIDIOL
     Indication: Pain
     Dosage: 1 DROP
     Route: 060
  7. ALPHAGAN P [Concomitant]
     Active Substance: BRIMONIDINE TARTRATE
     Indication: Glaucoma
     Dosage: 1 DROP IN EACH EYE TWICE DAILY
     Route: 047

REACTIONS (11)
  - Fungal infection [Recovered/Resolved]
  - Rash [Unknown]
  - Arthralgia [Unknown]
  - Unevaluable event [Unknown]
  - Off label use [Unknown]
  - Weight increased [Not Recovered/Not Resolved]
  - Body height decreased [Unknown]
  - Glaucoma [Not Recovered/Not Resolved]
  - Musculoskeletal chest pain [Unknown]
  - Body fat disorder [Not Recovered/Not Resolved]
  - Pain [Not Recovered/Not Resolved]
